FAERS Safety Report 20230156 (Version 1)
Quarter: 2021Q4

REPORT INFORMATION
  Report Type: Spontaneous
  Country: None (occurrence: DE)
  Receive Date: 20211226
  Receipt Date: 20211226
  Transmission Date: 20220303
  Serious: Yes (Hospitalization)
  Sender: FDA-Public Use
  Company Number: DE-Ascend Therapeutics US, LLC-2123384

PATIENT
  Age: 50 Year
  Sex: Female
  Weight: 51 kg

DRUGS (4)
  1. ESTROGEL [Suspect]
     Active Substance: ESTRADIOL
     Indication: Product used for unknown indication
     Route: 061
  2. ESTROGEL [Suspect]
     Active Substance: ESTRADIOL
  3. PROGESTERONE [Suspect]
     Active Substance: PROGESTERONE
     Route: 048
  4. ESTRADIOL HEMIHYDRATE [Suspect]
     Active Substance: ESTRADIOL HEMIHYDRATE
     Route: 061

REACTIONS (3)
  - Angina pectoris [Unknown]
  - Palpitations [Unknown]
  - Pain [Unknown]
